FAERS Safety Report 18235945 (Version 1)
Quarter: 2020Q3

REPORT INFORMATION
  Report Type: Spontaneous
  Country: GB (occurrence: GB)
  Receive Date: 20200905
  Receipt Date: 20200905
  Transmission Date: 20201103
  Serious: Yes (Other)
  Sender: FDA-Public Use
  Company Number: NVSC2020GB241174

PATIENT
  Age: 48 Year
  Sex: Female

DRUGS (3)
  1. CO?AMOXICLAV [Suspect]
     Active Substance: AMOXICILLIN\CLAVULANATE POTASSIUM
     Indication: PRODUCT USED FOR UNKNOWN INDICATION
     Dosage: UNK
     Route: 065
     Dates: start: 2020
  2. CLADRIBINE. [Suspect]
     Active Substance: CLADRIBINE
     Dosage: YEAR TWO WEEK ONE THERAPY: PRESCRIBED WITH TWO TABLET ON DAYS 1 TO 5
     Route: 048
     Dates: start: 20200817
  3. CLADRIBINE. [Suspect]
     Active Substance: CLADRIBINE
     Indication: MULTIPLE SCLEROSIS
     Dosage: YEAR TWO WEEK ONE THERAPY: PRESCRIBED WITH TWO TABLET ON DAYS 1 TO 5
     Route: 048
     Dates: start: 20190507

REACTIONS (2)
  - Oral candidiasis [Not Recovered/Not Resolved]
  - Heart rate decreased [Unknown]
